FAERS Safety Report 9701461 (Version 2)
Quarter: 2013Q4

REPORT INFORMATION
  Report Type: Spontaneous
  Country: US (occurrence: US)
  Receive Date: 20131121
  Receipt Date: 20131121
  Transmission Date: 20140711
  Serious: No
  Sender: FDA-Public Use
  Company Number: US-GILEAD-2008-0016889

PATIENT
  Sex: Female
  Weight: 119.75 kg

DRUGS (15)
  1. LETAIRIS [Suspect]
     Indication: PULMONARY ARTERIAL HYPERTENSION
     Route: 048
     Dates: start: 20080407
  2. HYDROCHLOROTHIAZIDE [Concomitant]
     Route: 048
  3. FUROSEMIDE [Concomitant]
     Route: 048
  4. LISINOPRIL [Concomitant]
     Route: 048
  5. PROCARDIA XL [Concomitant]
     Route: 048
  6. TRUVADA [Concomitant]
     Route: 048
     Dates: start: 200807
  7. NORVIR [Concomitant]
     Route: 048
  8. PROCRIT [Concomitant]
     Route: 058
  9. ASPIRIN [Concomitant]
     Route: 048
  10. ADVAIR [Concomitant]
     Route: 055
  11. ALBUTEROL [Concomitant]
     Route: 055
  12. VALIUM [Concomitant]
     Route: 048
  13. AZITHROMYCIN [Concomitant]
     Route: 048
  14. VICODIN [Concomitant]
     Route: 048
  15. IBUPROFEN [Concomitant]
     Route: 048

REACTIONS (1)
  - Local swelling [Unknown]
